FAERS Safety Report 9303859 (Version 2)
Quarter: 2014Q2

REPORT INFORMATION
  Report Type: Spontaneous
  Country: FR (occurrence: FR)
  Receive Date: 20130522
  Receipt Date: 20140529
  Transmission Date: 20141212
  Serious: Yes (Hospitalization)
  Sender: FDA-Public Use
  Company Number: FR-ASTRAZENECA-2013SE33464

PATIENT
  Age: 31 Year
  Sex: Male

DRUGS (2)
  1. XEROQUEL [Suspect]
     Route: 048
  2. TEMESTA [Suspect]
     Dosage: 1 MILLIGRAM ONCE OR TWICE DAILY
     Route: 048

REACTIONS (2)
  - Deep vein thrombosis [Recovered/Resolved]
  - Pulmonary embolism [Recovered/Resolved]
